FAERS Safety Report 17474614 (Version 4)
Quarter: 2020Q2

REPORT INFORMATION
  Report Type: Report from Study
  Country: US (occurrence: US)
  Receive Date: 20200228
  Receipt Date: 20200521
  Transmission Date: 20200713
  Serious: Yes (Hospitalization, Other)
  Sender: FDA-Public Use
  Company Number: US-JNJFOC-20181027045

PATIENT
  Age: 31 Year
  Sex: Female
  Weight: 71.67 kg

DRUGS (22)
  1. PROBIOTICS NOS [Concomitant]
     Active Substance: PROBIOTICS NOS
     Route: 048
     Dates: start: 20180503, end: 20181031
  2. PROBIOTICS NOS [Concomitant]
     Active Substance: PROBIOTICS NOS
     Route: 048
     Dates: start: 20180111, end: 20180115
  3. CRINONE [Concomitant]
     Active Substance: PROGESTERONE
     Route: 061
     Dates: start: 20180430, end: 20180731
  4. FLU VACCINE VII [Concomitant]
     Active Substance: INFLUENZA VIRUS VACCINE
     Dates: start: 20181031, end: 20181031
  5. LINCOMYCIN. [Concomitant]
     Active Substance: LINCOMYCIN
     Indication: CLOSTRIDIUM DIFFICILE INFECTION
     Route: 048
     Dates: start: 20181105, end: 20181118
  6. DHA [Concomitant]
     Active Substance: DIETARY SUPPLEMENT
     Route: 048
     Dates: start: 20180501, end: 20180515
  7. AMOXICILLIN. [Concomitant]
     Active Substance: AMOXICILLIN
     Route: 048
     Dates: start: 20180722, end: 20180728
  8. AUGMENTIN [Concomitant]
     Active Substance: AMOXICILLIN\CLAVULANATE POTASSIUM
     Route: 048
     Dates: start: 20180925, end: 20181001
  9. CLINDAMYCIN. [Concomitant]
     Active Substance: CLINDAMYCIN
     Route: 048
     Dates: start: 20181003, end: 20181016
  10. ESTROGEN NOS [Concomitant]
     Active Substance: ESTROGENS
     Route: 048
     Dates: start: 20180430, end: 20180731
  11. ESTRADIOL. [Concomitant]
     Active Substance: ESTRADIOL
     Route: 061
     Dates: start: 20180430, end: 20180731
  12. TDAP IPV [Concomitant]
     Active Substance: DIPHTHERIA AND TETANUS TOXOIDS AND ACELLULAR PERTUSSIS ADSORBED AND INACTIVATED POLIOVIRUS VACCINE
     Route: 030
     Dates: start: 20181114, end: 20181114
  13. VITAMIN B12 [Concomitant]
     Active Substance: CYANOCOBALAMIN
     Dates: start: 20181031, end: 20190115
  14. STELARA [Suspect]
     Active Substance: USTEKINUMAB
     Indication: CROHN^S DISEASE
     Route: 058
     Dates: start: 20161115, end: 20180411
  15. PRENATAL VITAMINS                  /07426201/ [Concomitant]
     Active Substance: ASCORBIC ACID\BIOTIN\MINERALS\NIACIN\RETINOL\TOCOPHEROL\VITAMIN B\VITAMIN D
     Route: 048
     Dates: start: 20180501
  16. TYLENOL [Concomitant]
     Active Substance: ACETAMINOPHEN
     Route: 048
     Dates: start: 20180503
  17. TDAP IPV [Concomitant]
     Active Substance: DIPHTHERIA AND TETANUS TOXOIDS AND ACELLULAR PERTUSSIS ADSORBED AND INACTIVATED POLIOVIRUS VACCINE
     Route: 030
     Dates: start: 20180701, end: 20180701
  18. PRENATAL VITAMINS                  /07426201/ [Concomitant]
     Active Substance: ASCORBIC ACID\BIOTIN\MINERALS\NIACIN\RETINOL\TOCOPHEROL\VITAMIN B\VITAMIN D
     Dates: start: 20180105, end: 20180115
  19. AMPICILLIN [Concomitant]
     Active Substance: AMPICILLIN
     Route: 048
     Dates: start: 20180515, end: 20180821
  20. PROGESTERONE. [Concomitant]
     Active Substance: PROGESTERONE
     Route: 030
     Dates: start: 20180430, end: 20180731
  21. DEXAMETHASONE. [Concomitant]
     Active Substance: DEXAMETHASONE
     Dates: start: 20181114, end: 20181122
  22. MUCINEX [Concomitant]
     Active Substance: GUAIFENESIN
     Indication: NASOPHARYNGITIS
     Route: 048
     Dates: start: 20181231, end: 20190102

REACTIONS (5)
  - Amniotic fluid volume decreased [Recovered/Resolved]
  - Urinary tract infection [Unknown]
  - Clostridium difficile infection [Recovered/Resolved]
  - Exposure during pregnancy [Recovered/Resolved]
  - Respiratory tract infection [Recovered/Resolved]

NARRATIVE: CASE EVENT DATE: 20180503
